FAERS Safety Report 9698154 (Version 2)
Quarter: 2013Q4

REPORT INFORMATION
  Report Type: Spontaneous
  Country: US (occurrence: US)
  Receive Date: 20131120
  Receipt Date: 20131205
  Transmission Date: 20140711
  Serious: No
  Sender: FDA-Public Use
  Company Number: US-PFIZER INC-2013330489

PATIENT
  Age: 55 Year
  Sex: Female

DRUGS (6)
  1. ATORVASTATIN CALCIUM [Suspect]
     Dosage: 40 MG, UNK
     Route: 048
  2. HYDROXYZINE HCL [Suspect]
     Dosage: UNK
  3. ASPIR-81 [Suspect]
     Dosage: UNK
  4. NIFEDICAL XL [Suspect]
     Dosage: UNK
  5. VITAMIN B-12 [Suspect]
     Dosage: UNK
  6. RANITIDINE [Suspect]
     Dosage: 300 MG, UNK
     Route: 048

REACTIONS (1)
  - Drug hypersensitivity [Unknown]
